FAERS Safety Report 14851414 (Version 2)
Quarter: 2018Q3

REPORT INFORMATION
  Report Type: Spontaneous
  Country: US (occurrence: US)
  Receive Date: 20180507
  Receipt Date: 20180724
  Transmission Date: 20181010
  Serious: No
  Sender: FDA-Public Use
  Company Number: US-009507513-1804USA009240

PATIENT
  Age: 51 Year
  Sex: Male

DRUGS (2)
  1. COBICISTAT (+) ELVITEGRAVIR (+) EMTRICITABINE (+) TENOFOVIR ALAFENAMID [Concomitant]
     Indication: HIV INFECTION
     Dosage: UNK
  2. KEYTRUDA [Suspect]
     Active Substance: PEMBROLIZUMAB
     Indication: NON-SMALL CELL LUNG CANCER
     Dosage: 200 MG, Q3W
     Route: 042

REACTIONS (1)
  - Arthralgia [Unknown]
